FAERS Safety Report 6147868-9 (Version None)
Quarter: 2009Q2

REPORT INFORMATION
  Report Type: 
  Country: None (occurrence: None)
  Receive Date: 20090408
  Receipt Date: 20090327
  Transmission Date: 20091009
  Serious: Yes (Hospitalization, Other)
  Sender: FDA-Public Use
  Company Number: JP-PFIZER INC-2009183428

PATIENT

DRUGS (3)
  1. SUNITINIB MALATE [Suspect]
     Indication: RENAL CELL CARCINOMA
     Dosage: 50 MG, 1X/DAY
     Route: 048
     Dates: start: 20090202, end: 20090216
  2. WARFARIN [Suspect]
     Dosage: UNK
     Dates: start: 20090123
  3. SUMIFERON [Suspect]
     Dosage: UNK
     Route: 058
     Dates: start: 20090123, end: 20090223

REACTIONS (2)
  - FULL BLOOD COUNT DECREASED [None]
  - HAEMATURIA [None]
